FAERS Safety Report 6033830-3 (Version None)
Quarter: 2009Q1

REPORT INFORMATION
  Report Type: 
  Country: None (occurrence: None)
  Receive Date: 20090112
  Receipt Date: 20090108
  Transmission Date: 20090719
  Serious: Yes (Death)
  Sender: FDA-Public Use
  Company Number: JP-JNJFOC-20090101515

PATIENT
  Age: 5 Decade
  Sex: Male

DRUGS (13)
  1. FENTANYL CITRATE [Suspect]
     Route: 062
  2. FENTANYL CITRATE [Suspect]
     Route: 062
  3. FENTANYL CITRATE [Suspect]
     Route: 062
  4. FENTANYL CITRATE [Suspect]
     Route: 062
  5. FENTANYL CITRATE [Suspect]
     Route: 062
  6. FENTANYL CITRATE [Suspect]
     Route: 062
  7. FENTANYL CITRATE [Suspect]
     Route: 062
  8. FENTANYL CITRATE [Suspect]
     Route: 062
  9. FENTANYL CITRATE [Suspect]
     Indication: PAIN MANAGEMENT
     Route: 062
  10. MORPHINE [Concomitant]
  11. MORPHINE [Concomitant]
  12. MORPHINE [Concomitant]
  13. MORPHINE [Concomitant]
     Indication: PAIN MANAGEMENT

REACTIONS (3)
  - CONSTIPATION [None]
  - DISEASE PROGRESSION [None]
  - INAPPROPRIATE SCHEDULE OF DRUG ADMINISTRATION [None]
